FAERS Safety Report 6629112-9 (Version None)
Quarter: 2010Q1

REPORT INFORMATION
  Report Type: 
  Country: None (occurrence: None)
  Receive Date: 20100311
  Receipt Date: 20090814
  Transmission Date: 20100710
  Serious: No
  Sender: FDA-Public Use
  Company Number: US-BIOGENIDEC-2009BI025936

PATIENT
  Sex: Female

DRUGS (1)
  1. AVONEX [Suspect]
     Indication: MULTIPLE SCLEROSIS
     Route: 030
     Dates: start: 19990522, end: 20080101

REACTIONS (5)
  - ABASIA [None]
  - DYSPHONIA [None]
  - MOBILITY DECREASED [None]
  - MUSCLE SPASTICITY [None]
  - TREMOR [None]
